FAERS Safety Report 8224827-3 (Version None)
Quarter: 2012Q1

REPORT INFORMATION
  Report Type: 
  Country: None (occurrence: None)
  Receive Date: 20120321
  Receipt Date: 20120313
  Transmission Date: 20120608
  Serious: Yes (Other)
  Sender: FDA-Public Use
  Company Number: US-ROCHE-784542

PATIENT
  Sex: Female
  Weight: 62.652 kg

DRUGS (2)
  1. ACCUTANE [Suspect]
     Route: 065
     Dates: start: 19980504, end: 19980601
  2. ACCUTANE [Suspect]
     Indication: ACNE
     Route: 065

REACTIONS (4)
  - COLITIS ULCERATIVE [None]
  - INTESTINAL POLYP [None]
  - STRESS [None]
  - INFLAMMATORY BOWEL DISEASE [None]
